FAERS Safety Report 8146179-X (Version None)
Quarter: 2012Q1

REPORT INFORMATION
  Report Type: 
  Country: None (occurrence: None)
  Receive Date: 20120217
  Receipt Date: 20110505
  Transmission Date: 20120608
  Serious: No
  Sender: FDA-Public Use
  Company Number: US-ABBOTT-11P-163-0723774-00

PATIENT
  Sex: Male
  Weight: 83.99 kg

DRUGS (2)
  1. SIMCOR [Suspect]
     Indication: PRODUCT USED FOR UNKNOWN INDICATION
     Dosage: 500/SIMVASTATIN DOSE
     Dates: start: 20110401
  2. ALLEGRA [Concomitant]
     Indication: SEASONAL ALLERGY
     Dosage: EVERY MORNING

REACTIONS (2)
  - PRURITUS [None]
  - RASH [None]
